FAERS Safety Report 8774008 (Version 2)
Quarter: 2012Q4

REPORT INFORMATION
  Report Type: 
  Country: US (occurrence: US)
  Receive Date: 20120907
  Receipt Date: 20120920
  Transmission Date: 20130627
  Serious: Yes (Other)
  Sender: FDA-Public Use
  Company Number: US-ACCORD-014616

PATIENT
  Age: 41 Year
  Sex: Female
  Weight: 77.27 kg

DRUGS (5)
  1. QUETIAPINE FUMARATE [Suspect]
     Indication: MOOD DISORDER NOS
     Dosage: Frequency- hs
     Route: 048
     Dates: start: 20120831, end: 20120901
  2. SYNTHROID [Concomitant]
     Indication: HYPOTHYROIDISM
     Route: 048
  3. ESCITALOPRAM [Concomitant]
     Indication: MOOD DISORDER NOS
     Dosage: in the morning
     Route: 048
  4. AMBIEN [Concomitant]
     Dosage: daily dose and frequency: hs prn
     Route: 048
     Dates: start: 20120831
  5. GLYCINE [Concomitant]
     Route: 048

REACTIONS (3)
  - Skin began to feel hot [Recovered/Resolved]
  - Diffuse pruritic rash with swelling and pain of skin [Recovered/Resolved]
  - Insomnia [Recovered/Resolved]
